FAERS Safety Report 8020462-0 (Version None)
Quarter: 2012Q1

REPORT INFORMATION
  Report Type: 
  Country: None (occurrence: None)
  Receive Date: 20120103
  Receipt Date: 20111228
  Transmission Date: 20120608
  Serious: Yes (Other)
  Sender: FDA-Public Use
  Company Number: US-PFIZER INC-2011299721

PATIENT
  Sex: Female

DRUGS (5)
  1. MULTIVITAMIN ^LAPPE^ [Concomitant]
     Dosage: ONE TABLET DAILY
  2. RAPAMUNE [Suspect]
     Indication: IMMUNOSUPPRESSION
  3. RAPAMUNE [Suspect]
     Indication: LIVER TRANSPLANT
     Dosage: 2 MG, EVERY AM
     Route: 048
     Dates: start: 20090410, end: 20090411
  4. PROGRAF [Concomitant]
     Dosage: 0.5 MG, 2X/DAY
     Dates: start: 20000201
  5. PRILOSEC [Concomitant]
     Dosage: 20 MG, 1X/DAY

REACTIONS (1)
  - MALAISE [None]
